FAERS Safety Report 6124012-5 (Version None)
Quarter: 2009Q1

REPORT INFORMATION
  Report Type: 
  Country: None (occurrence: None)
  Receive Date: 20090317
  Receipt Date: 20090211
  Transmission Date: 20090719
  Serious: Yes (Hospitalization)
  Sender: FDA-Public Use
  Company Number: 2009EU000671

PATIENT
  Age: 63 Year
  Sex: Male

DRUGS (6)
  1. PROGRAF [Suspect]
     Indication: HEART TRANSPLANT
     Dosage: 6.5 MG, ORAL
     Route: 048
  2. CELLCEPT [Suspect]
     Dosage: 250 MG, BID, ORAL
     Route: 048
  3. PREDNISOLONE [Suspect]
     Dosage: 10 MG, ORAL
     Route: 048
  4. THEOPHYLLINE [Suspect]
     Dosage: 100 MG, BID, ORAL
     Route: 048
  5. PRAVASTATIN [Suspect]
     Dosage: 20 MG, ORAL
     Route: 048
  6. ISRADIPINE [Suspect]
     Dosage: 2.5 MG, ORAL
     Route: 048

REACTIONS (11)
  - BLOOD ALKALINE PHOSPHATASE INCREASED [None]
  - BRONCHITIS [None]
  - DIALYSIS [None]
  - DIARRHOEA [None]
  - DYSKINESIA [None]
  - GAMMA-GLUTAMYLTRANSFERASE INCREASED [None]
  - GENERAL PHYSICAL HEALTH DETERIORATION [None]
  - GOUT [None]
  - RENAL FAILURE [None]
  - THROMBOTIC MICROANGIOPATHY [None]
  - VOMITING [None]
